FAERS Safety Report 18902760 (Version 1)
Quarter: 2021Q1

REPORT INFORMATION
  Report Type: Spontaneous
  Country: US (occurrence: US)
  Receive Date: 20210216
  Receipt Date: 20210216
  Transmission Date: 20210420
  Serious: Yes (Hospitalization)
  Sender: FDA-Public Use
  Company Number: None

PATIENT
  Age: 56 Year
  Sex: Female
  Weight: 158.8 kg

DRUGS (20)
  1. REMDESIVIR. [Suspect]
     Active Substance: REMDESIVIR
     Indication: COVID-19 PNEUMONIA
     Dosage: ?          OTHER FREQUENCY:200MG X1, 100MG/D;?
     Route: 042
     Dates: start: 20201229, end: 20201231
  2. ADVAIR HFA 115/21 2 PUFFS INH BID [Concomitant]
     Dates: start: 20210101, end: 20210106
  3. METOLAZONE 2.5MG PO DAILY [Concomitant]
     Dates: start: 20201229, end: 20201230
  4. VIT C 1000MG, D3 1000 UNITS, ZINC 220MG DAILY [Concomitant]
     Dates: start: 20201229, end: 20210106
  5. ACETAMINOPHEN 650MG PO Q6H PRN [Concomitant]
     Dates: start: 20201229, end: 20210106
  6. OXYCODONE 10MG PO Q6H [Concomitant]
     Dates: start: 20201229, end: 20210103
  7. GABAPENTIN 100MG BID [Concomitant]
     Dates: start: 20201229, end: 20210103
  8. LISINOPRIL 40MG DAILY [Concomitant]
     Dates: start: 20201229, end: 20201230
  9. CARVEDILOL 6.25MG PO BID [Concomitant]
     Dates: start: 20201229, end: 20210102
  10. DEXAMETHASONE 6MG IV DAILY [Concomitant]
     Dates: start: 20201229, end: 20210106
  11. DICYCLOMINE 20MG 4/XDAY [Concomitant]
     Dates: start: 20201229, end: 20210106
  12. ALBUTEROL HFA 2 PUFFS INH Q6H PRN WHEEZING [Concomitant]
     Dates: start: 20201229, end: 20210106
  13. CEFEPIME 2G IV Q12H [Concomitant]
     Dates: start: 20201229, end: 20210106
  14. LANTUS PER PHARMACY PROTOCOL QHS [Concomitant]
     Dates: start: 20201229, end: 20210106
  15. INSULIN LISPRO SSI 4/XDAY [Concomitant]
     Dates: start: 20201229, end: 20210106
  16. ASPIRIN EC 81MG DAILY [Concomitant]
     Dates: start: 20201229, end: 20210106
  17. ENOXAPARIN 30MG SUBQ QHS [Concomitant]
     Dates: start: 20201231, end: 20210105
  18. LIDOCAINE 4% PATCH 1 PATCH Q24H [Concomitant]
     Dates: start: 20210105, end: 20210106
  19. ROBITUSSIN DM 100MG?10MG/5ML PO Q4H PRN COUGH [Concomitant]
     Dates: start: 20201229, end: 20210106
  20. BUMETANIDE 1MG TID WITH MEALS [Concomitant]
     Dates: start: 20201229, end: 20201230

REACTIONS (2)
  - Renal impairment [None]
  - Therapy interrupted [None]

NARRATIVE: CASE EVENT DATE: 20201231
